FAERS Safety Report 7820935-7 (Version None)
Quarter: 2011Q4

REPORT INFORMATION
  Report Type: 
  Country: None (occurrence: None)
  Receive Date: 20111018
  Receipt Date: 20111007
  Transmission Date: 20120403
  Serious: Yes (Hospitalization)
  Sender: FDA-Public Use
  Company Number: DK-GLAXOSMITHKLINE-B0755820A

PATIENT
  Age: 16 Year
  Sex: Male

DRUGS (1)
  1. FLUTICASONE PROPIONATE/SALMETEROL [Suspect]
     Indication: ASTHMA
     Dosage: 2BRTH TWICE PER DAY
     Route: 065

REACTIONS (12)
  - FEELING HOT [None]
  - MALAISE [None]
  - DIZZINESS [None]
  - HYPOTENSION [None]
  - PITUITARY TUMOUR BENIGN [None]
  - C-REACTIVE PROTEIN INCREASED [None]
  - ADRENAL INSUFFICIENCY [None]
  - LEUKOCYTOSIS [None]
  - SEPSIS [None]
  - COUGH [None]
  - DEPRESSED LEVEL OF CONSCIOUSNESS [None]
  - PNEUMOCOCCAL INFECTION [None]
